FAERS Safety Report 24208756 (Version 1)
Quarter: 2024Q3

REPORT INFORMATION
  Report Type: Report from Study
  Country: IN (occurrence: IN)
  Receive Date: 20240814
  Receipt Date: 20240814
  Transmission Date: 20241017
  Serious: Yes (Other)
  Sender: CIPLA
  Company Number: IN-CIPLA LTD.-2024IN08441

PATIENT

DRUGS (6)
  1. METOPROLOL SUCCINATE [Suspect]
     Active Substance: METOPROLOL SUCCINATE
     Indication: Product used for unknown indication
     Dosage: DOSE- 1 (UNSPECIFIED UNITS), FREQUENCY- 1 (UNSPECIFIED UNITS)
     Route: 048
     Dates: start: 202407
  2. ARVAST [Concomitant]
     Indication: Product used for unknown indication
     Dosage: 40 MILLIGRAM, QD
     Route: 065
     Dates: start: 202407
  3. TICAGRELOR [Concomitant]
     Active Substance: TICAGRELOR
     Indication: Product used for unknown indication
     Dosage: 90 MILLIGRAM, BID
     Route: 065
     Dates: start: 202407
  4. RANACE [Concomitant]
     Indication: Product used for unknown indication
     Dosage: 500 MILLIGRAM, BID
     Route: 065
     Dates: start: 202407
  5. NICORAN [Concomitant]
     Indication: Product used for unknown indication
     Dosage: 10 MILLIGRAM, QD
     Route: 065
     Dates: start: 202407
  6. ASPIRIN [Concomitant]
     Active Substance: ASPIRIN
     Indication: Product used for unknown indication
     Dosage: 75 MILLIGRAM, QD
     Route: 065
     Dates: start: 202407

REACTIONS (1)
  - Coronary artery occlusion [Not Recovered/Not Resolved]

NARRATIVE: CASE EVENT DATE: 20240701
